FAERS Safety Report 7685089-9 (Version None)
Quarter: 2011Q3

REPORT INFORMATION
  Report Type: 
  Country: None (occurrence: None)
  Receive Date: 20110811
  Receipt Date: 20110811
  Transmission Date: 20111222
  Serious: Yes (Life-Threatening)
  Sender: FDA-Public Use
  Company Number: TCI2011A04221

PATIENT
  Age: 71 Year
  Sex: Male

DRUGS (8)
  1. BUFFERIN [Concomitant]
  2. LASIX [Concomitant]
  3. LIPITOR (ATORVASTATIN CALCIUM) [Concomitant]
  4. ACTOS [Suspect]
     Dosage: 15 MG (15 MG, 1 D) PER ORAL
     Route: 048
     Dates: start: 20100531, end: 20110703
  5. SEIBULE (GIGLITOL) [Concomitant]
  6. DIGOXIN [Concomitant]
  7. WARFARIN (WARFARIN POTASSIUM) [Concomitant]
  8. BISOPROLOL FUMARATE [Concomitant]

REACTIONS (1)
  - BLADDER CANCER [None]
